FAERS Safety Report 19236668 (Version 2)
Quarter: 2022Q3

REPORT INFORMATION
  Report Type: Report from Study
  Country: US (occurrence: US)
  Receive Date: 20210510
  Receipt Date: 20220929
  Transmission Date: 20221027
  Serious: No
  Sender: FDA-Public Use
  Company Number: US-ACADIA PHARMACEUTICALS INC.-ACA-2021-PIM-001435

PATIENT
  Age: 65 Year
  Sex: Male

DRUGS (9)
  1. NUPLAZID [Suspect]
     Active Substance: PIMAVANSERIN TARTRATE
     Indication: Parkinson^s disease psychosis
     Dosage: 34 MILLIGRAM, QD
     Route: 048
     Dates: start: 202010
  2. SEROQUEL [Concomitant]
     Active Substance: QUETIAPINE FUMARATE
     Dosage: 25 MG TABLET
  3. PRISTIQ EXTENDED-RELEASE [Concomitant]
     Active Substance: DESVENLAFAXINE SUCCINATE
     Dosage: TAB ER 24H
  4. VITAMIN D NOS [Concomitant]
     Active Substance: VITAMIN D NOS
  5. CURCUMIN [Concomitant]
     Active Substance: CURCUMIN
  6. TEMOVATE [Concomitant]
     Active Substance: CLOBETASOL PROPIONATE
  7. VITAMINS [Concomitant]
     Active Substance: VITAMINS
  8. HYDROCORTISONE [Concomitant]
     Active Substance: HYDROCORTISONE
  9. Prostate vitamin [Concomitant]

REACTIONS (3)
  - Dyspepsia [Recovered/Resolved]
  - Drug ineffective [Unknown]
  - Hallucination [Not Recovered/Not Resolved]

NARRATIVE: CASE EVENT DATE: 20210412
